FAERS Safety Report 20783497 (Version 5)
Quarter: 2022Q4

REPORT INFORMATION
  Report Type: Spontaneous
  Country: CH (occurrence: GB)
  Receive Date: 20220504
  Receipt Date: 20221031
  Transmission Date: 20230113
  Serious: Yes (Other)
  Sender: FDA-Public Use
  Company Number: CH-009507513-2201CHE003934

PATIENT
  Sex: Male

DRUGS (4)
  1. KEYTRUDA [Suspect]
     Active Substance: PEMBROLIZUMAB
     Indication: Non-small cell lung cancer stage IV
     Dosage: 400 MILLIGRAM, EVERY 6 WEEKS
  2. KEYTRUDA [Suspect]
     Active Substance: PEMBROLIZUMAB
     Dosage: UNK
     Dates: start: 20221021, end: 20221021
  3. TAMSULOSIN [Concomitant]
     Active Substance: TAMSULOSIN
     Dosage: UNK
  4. IBUPROFEN [Concomitant]
     Active Substance: IBUPROFEN
     Dosage: UNK

REACTIONS (25)
  - Malignant neoplasm progression [Unknown]
  - Tumour pseudoprogression [Unknown]
  - Dysuria [Recovering/Resolving]
  - Eye pain [Unknown]
  - Feeling cold [Unknown]
  - Rhinalgia [Unknown]
  - Toothache [Unknown]
  - Skin disorder [Unknown]
  - Skin discolouration [Recovered/Resolved]
  - Chest pain [Unknown]
  - Hair colour changes [Unknown]
  - Cough [Recovered/Resolved]
  - Chills [Unknown]
  - Fatigue [Unknown]
  - Headache [Recovered/Resolved]
  - Cough [Unknown]
  - Rash macular [Unknown]
  - Cough [Unknown]
  - Decreased appetite [Recovered/Resolved]
  - Fatigue [Recovered/Resolved]
  - Glomerular filtration rate decreased [Unknown]
  - Headache [Unknown]
  - Fatigue [Unknown]
  - Apathy [Unknown]
  - Ill-defined disorder [Unknown]

NARRATIVE: CASE EVENT DATE: 20220101
